FAERS Safety Report 16966950 (Version 1)
Quarter: 2019Q4

REPORT INFORMATION
  Report Type: Spontaneous
  Country: US (occurrence: US)
  Receive Date: 20191028
  Receipt Date: 20191028
  Transmission Date: 20200122
  Serious: No
  Sender: FDA-Public Use
  Company Number: US-SA-2019SA298609

PATIENT
  Age: 65 Year
  Sex: Male

DRUGS (2)
  1. REPATHA [Concomitant]
     Active Substance: EVOLOCUMAB
     Dosage: UNK UNK, UNK
     Dates: start: 2019
  2. PRALUENT [Suspect]
     Active Substance: ALIROCUMAB
     Indication: BLOOD CHOLESTEROL
     Dosage: 75 MG, QOW
     Dates: start: 20191015

REACTIONS (6)
  - Musculoskeletal pain [Not Recovered/Not Resolved]
  - Nasopharyngitis [Not Recovered/Not Resolved]
  - Asthenia [Not Recovered/Not Resolved]
  - Muscle twitching [Recovered/Resolved]
  - Therapeutic response unexpected [Unknown]
  - Muscular weakness [Not Recovered/Not Resolved]

NARRATIVE: CASE EVENT DATE: 201910
